FAERS Safety Report 8006597-7 (Version None)
Quarter: 2011Q4

REPORT INFORMATION
  Report Type: 
  Country: None (occurrence: None)
  Receive Date: 20111227
  Receipt Date: 20100223
  Transmission Date: 20120403
  Serious: No
  Sender: FDA-Public Use
  Company Number: US-BAYER-201014944NA

PATIENT
  Sex: Female

DRUGS (5)
  1. CIPROFLOXACIN [Suspect]
     Indication: PRODUCT USED FOR UNKNOWN INDICATION
  2. COUMADIN [Concomitant]
  3. LIPITOR [Concomitant]
  4. DIGOXIN [Concomitant]
  5. FOLIC ACID [Concomitant]

REACTIONS (1)
  - DRUG HYPERSENSITIVITY [None]
